FAERS Safety Report 8065581-8 (Version None)
Quarter: 2012Q1

REPORT INFORMATION
  Report Type: 
  Country: None (occurrence: None)
  Receive Date: 20120117
  Receipt Date: 20120109
  Transmission Date: 20120608
  Serious: Yes (Hospitalization)
  Sender: FDA-Public Use
  Company Number: GER/UKI/12/0022590

PATIENT
  Age: 69 Year
  Sex: Male

DRUGS (14)
  1. ALENDRONIC ACID (ALENDRONIC ACID) [Suspect]
     Indication: PRODUCT USED FOR UNKNOWN INDICATION
     Dosage: 70 MG, ORAL
     Route: 048
     Dates: start: 20110101
  2. ADALAT (NIFEIPINE) [Concomitant]
  3. AMINOPHYLLIN [Concomitant]
  4. ATORVASTATIN [Concomitant]
  5. LANSOPRAZOLE [Concomitant]
  6. TOLTERODINE TARTRATE [Concomitant]
  7. FLUTICAONSE (FLUTICASONE) [Concomitant]
  8. FUROSEMIDE [Concomitant]
  9. GLICLAZIDE (GLICLAZIDE) [Concomitant]
  10. PRIMIDONE [Concomitant]
  11. PREDNISOLONE [Concomitant]
  12. PREDNISOLONE [Suspect]
     Indication: PRODUCT USED FOR UNKNOWN INDICATION
     Dosage: 5 MG, ORAL
     Route: 048
  13. CALCICHEW D3 (LEKOVIT CA) [Concomitant]
  14. METFORMIN HCL [Concomitant]

REACTIONS (4)
  - GASTROOESOPHAGEAL REFLUX DISEASE [None]
  - GASTRITIS [None]
  - GASTROINTESTINAL ULCER [None]
  - WEIGHT DECREASED [None]
